FAERS Safety Report 4530832-0 (Version None)
Quarter: 2004Q4

REPORT INFORMATION
  Report Type: 
  Country: None (occurrence: None)
  Receive Date: 20041217
  Receipt Date: 20041208
  Transmission Date: 20050328
  Serious: Yes (Hospitalization)
  Sender: FDA-Public Use
  Company Number: GB-MERCK-0412GBR00083

PATIENT
  Age: 89 Year
  Sex: Female

DRUGS (9)
  1. ZOCOR [Suspect]
     Indication: MYOCARDIAL INFARCTION
     Route: 048
     Dates: start: 20040901, end: 20041103
  2. ASPIRIN [Concomitant]
     Route: 065
  3. CLOPIDOGREL BISULFATE [Concomitant]
     Route: 065
  4. RAMIPRIL [Concomitant]
     Route: 065
  5. FUROSEMIDE [Concomitant]
     Route: 065
  6. NICORANDIL [Concomitant]
     Route: 065
  7. ATENOLOL [Concomitant]
     Route: 065
  8. NIFEDIPINE [Concomitant]
     Route: 065
  9. ISOSORBIDE [Concomitant]
     Route: 065

REACTIONS (5)
  - ASTHENIA [None]
  - BLOOD CREATINE PHOSPHOKINASE INCREASED [None]
  - CHEST PAIN [None]
  - MYALGIA [None]
  - RHABDOMYOLYSIS [None]
